FAERS Safety Report 4727746-X (Version None)
Quarter: 2005Q3

REPORT INFORMATION
  Report Type: 
  Country: None (occurrence: None)
  Receive Date: 20050727
  Receipt Date: 20050711
  Transmission Date: 20060218
  Serious: Yes (Hospitalization)
  Sender: FDA-Public Use
  Company Number: DSA_26756_2005

PATIENT
  Age: 68 Year
  Sex: Male

DRUGS (2)
  1. TAVOR [Suspect]
     Dosage: 30 MG ONCE PO
     Route: 048
     Dates: start: 20050706, end: 20050706
  2. ETHANOL [Suspect]
     Dosage: 0.5 L ONCE PO
     Route: 048
     Dates: start: 20050706, end: 20050706

REACTIONS (6)
  - ATRIOVENTRICULAR BLOCK [None]
  - DIARRHOEA [None]
  - FATIGUE [None]
  - INTENTIONAL MISUSE [None]
  - OVERDOSE [None]
  - SOMNOLENCE [None]
